FAERS Safety Report 4700464-X (Version None)
Quarter: 2005Q2

REPORT INFORMATION
  Report Type: 
  Country: None (occurrence: None)
  Receive Date: 20050627
  Receipt Date: 20050617
  Transmission Date: 20051028
  Serious: Yes (Life-Threatening)
  Sender: FDA-Public Use
  Company Number: FR-ROCHE-407862

PATIENT
  Age: 87 Year
  Sex: Male

DRUGS (5)
  1. LOXEN LP [Suspect]
     Indication: HYPERTENSION
     Route: 048
     Dates: end: 20050319
  2. ALDACTONE [Suspect]
     Indication: HYPERTENSION
     Route: 048
     Dates: end: 20050319
  3. DIAMICRON [Suspect]
     Indication: DIABETES MELLITUS INSULIN-DEPENDENT
     Route: 048
     Dates: start: 20000615, end: 20050319
  4. PLAVIX [Suspect]
     Indication: DRUG USE FOR UNKNOWN INDICATION
     Route: 048
     Dates: start: 20030615, end: 20050319
  5. NITROGLYCERIN [Suspect]
     Indication: ANGINA PECTORIS
     Route: 023
     Dates: start: 20030615, end: 20050319

REACTIONS (4)
  - PURPURA [None]
  - RECTAL HAEMORRHAGE [None]
  - RENAL FAILURE [None]
  - THROMBOCYTOPENIA [None]
